FAERS Safety Report 21237391 (Version 1)
Quarter: 2022Q3

REPORT INFORMATION
  Report Type: Spontaneous
  Country: JP (occurrence: JP)
  Receive Date: 20220822
  Receipt Date: 20220822
  Transmission Date: 20221027
  Serious: Yes (Other)
  Sender: FDA-Public Use
  Company Number: JP-ASTELLAS-2022JP012377

PATIENT
  Age: 70 Year
  Sex: Female

DRUGS (3)
  1. TACROLIMUS [Suspect]
     Active Substance: TACROLIMUS
     Indication: Dermatomyositis
     Dosage: 3 MG/DAY, UNKNOWN FREQ.
     Route: 048
  2. PREDNISOLONE [Suspect]
     Active Substance: PREDNISOLONE
     Indication: Dermatomyositis
     Dosage: 15 MG/DAY, UNKNOWN FREQ.
     Route: 048
  3. PREDNISOLONE [Suspect]
     Active Substance: PREDNISOLONE
     Dosage: 35 MG/DAY, UNKNOWN FREQ.
     Route: 048

REACTIONS (3)
  - Skin mass [Recovering/Resolving]
  - Mycobacterium chelonae infection [Recovering/Resolving]
  - Off label use [Unknown]
